FAERS Safety Report 5335865-2 (Version None)
Quarter: 2007Q1

REPORT INFORMATION
  Report Type: 
  Country: None (occurrence: None)
  Receive Date: 20070228
  Receipt Date: 20061031
  Transmission Date: 20070707
  Serious: No
  Sender: FDA-Public Use
  Company Number: S06-USA-04569-01

PATIENT
  Age: 74 Year
  Sex: Male

DRUGS (1)
  1. CAMPRAL [Suspect]
     Indication: TINNITUS
     Dosage: 666 MG TID PO
     Route: 048
     Dates: start: 20061014

REACTIONS (2)
  - ABDOMINAL PAIN [None]
  - DYSPNOEA [None]
